FAERS Safety Report 21336927 (Version 1)
Quarter: 2022Q3

REPORT INFORMATION
  Report Type: Spontaneous
  Country: US (occurrence: US)
  Receive Date: 20220915
  Receipt Date: 20220915
  Transmission Date: 20221027
  Serious: No
  Sender: FDA-Public Use
  Company Number: US-BAYER-2022A128244

PATIENT
  Age: 2 Year

DRUGS (1)
  1. CHILDREN CLARITIN ALLERGY [Suspect]
     Active Substance: LORATADINE
     Dosage: 5ML THIS MORNING AND NOW AT 12:00 PM
     Route: 048

REACTIONS (1)
  - Extra dose administered [Recovered/Resolved with Sequelae]

NARRATIVE: CASE EVENT DATE: 20220913
